FAERS Safety Report 11442405 (Version 1)
Quarter: 2015Q3

REPORT INFORMATION
  Report Type: Report from Study
  Country: US (occurrence: US)
  Receive Date: 20150901
  Receipt Date: 20150901
  Transmission Date: 20151125
  Serious: Yes (Hospitalization)
  Sender: FDA-Public Use
  Company Number: US-ACTELION-A-NJ2015-119139

PATIENT
  Age: 41 Year
  Sex: Male

DRUGS (5)
  1. LASIX [Concomitant]
     Active Substance: FUROSEMIDE
  2. REMODULIN [Concomitant]
     Active Substance: TREPROSTINIL
     Dosage: 40 NG/KG, PER MIN
     Dates: start: 20150113
  3. ADCIRCA [Concomitant]
     Active Substance: TADALAFIL
     Dosage: 40 MG, QD
     Dates: start: 20150315
  4. MACITENTAN [Suspect]
     Active Substance: MACITENTAN
     Indication: PULMONARY ARTERIAL HYPERTENSION
     Dosage: 10 MG, QD
     Route: 048
     Dates: start: 2014
  5. VELETRI [Suspect]
     Active Substance: EPOPROSTENOL
     Indication: PULMONARY ARTERIAL HYPERTENSION
     Route: 042

REACTIONS (5)
  - Fluid overload [Unknown]
  - Oxygen saturation decreased [Not Recovered/Not Resolved]
  - Treatment noncompliance [Unknown]
  - Tachyarrhythmia [Unknown]
  - Abdominal distension [Unknown]

NARRATIVE: CASE EVENT DATE: 20150529
